FAERS Safety Report 23826807 (Version 1)
Quarter: 2024Q2

REPORT INFORMATION
  Report Type: Spontaneous
  Country: US (occurrence: US)
  Receive Date: 20240507
  Receipt Date: 20240507
  Transmission Date: 20240716
  Serious: No
  Sender: FDA-Public Use
  Company Number: US-ABBVIE-5744289

PATIENT
  Age: 7 Year
  Sex: Female

DRUGS (1)
  1. LUPRON [Suspect]
     Active Substance: LEUPROLIDE ACETATE
     Indication: Precocious puberty
     Route: 030

REACTIONS (1)
  - Abscess sterile [Recovered/Resolved]
